FAERS Safety Report 13013659 (Version 2)
Quarter: 2016Q4

REPORT INFORMATION
  Report Type: Spontaneous
  Country: US (occurrence: US)
  Receive Date: 20161209
  Receipt Date: 20161216
  Transmission Date: 20170207
  Serious: Yes (Hospitalization)
  Sender: FDA-Public Use
  Company Number: US-SA-2016SA223106

PATIENT
  Age: 74 Year
  Sex: Female

DRUGS (8)
  1. ALEMTUZUMAB [Suspect]
     Active Substance: ALEMTUZUMAB
     Indication: IMMUNOSUPPRESSION
     Route: 065
  2. FLUCONAZOLE. [Concomitant]
     Active Substance: FLUCONAZOLE
     Indication: INFECTION PROPHYLAXIS
  3. METHYLPREDNISOLONE. [Suspect]
     Active Substance: METHYLPREDNISOLONE
     Indication: IMMUNOSUPPRESSION
     Route: 065
  4. MYCOPHENOLATE MOFETIL. [Suspect]
     Active Substance: MYCOPHENOLATE MOFETIL
     Indication: IMMUNOSUPPRESSION
     Route: 065
  5. TRIMETHOPRIM/SULFAMETHOXAZOLE [Concomitant]
     Indication: INFECTION PROPHYLAXIS
  6. DAPSONE. [Concomitant]
     Active Substance: DAPSONE
  7. TACROLIMUS. [Suspect]
     Active Substance: TACROLIMUS
     Indication: IMMUNOSUPPRESSION
     Route: 065
  8. VALGANCICLOVIR. [Concomitant]
     Active Substance: VALGANCICLOVIR
     Indication: INFECTION PROPHYLAXIS

REACTIONS (13)
  - Klebsiella infection [Unknown]
  - Enterococcal infection [Unknown]
  - Off label use [Unknown]
  - Disseminated tuberculosis [Unknown]
  - Pyrexia [Unknown]
  - Pyelonephritis fungal [Unknown]
  - Pneumonia influenzal [Unknown]
  - Clostridium difficile colitis [Unknown]
  - Urinary tract infection [Unknown]
  - Diarrhoea [Unknown]
  - Systemic candida [Unknown]
  - Local swelling [Unknown]
  - Hydronephrosis [Unknown]
